FAERS Safety Report 17119412 (Version 1)
Quarter: 2019Q4

REPORT INFORMATION
  Report Type: Spontaneous
  Country: US (occurrence: US)
  Receive Date: 20191206
  Receipt Date: 20191206
  Transmission Date: 20200122
  Serious: Yes (Other)
  Sender: FDA-Public Use
  Company Number: US-SA-2019SA335673

PATIENT
  Age: 75 Year
  Sex: Female

DRUGS (1)
  1. DULCOLAX PINK [Suspect]
     Active Substance: BISACODYL
     Dosage: UNK UNK, QOD

REACTIONS (5)
  - Renal failure [Unknown]
  - Cataract [Unknown]
  - Cardiac failure congestive [Unknown]
  - Interstitial lung disease [Unknown]
  - Hernia [Unknown]
